FAERS Safety Report 6401841-1 (Version None)
Quarter: 2009Q4

REPORT INFORMATION
  Report Type: 
  Country: None (occurrence: None)
  Receive Date: 20091015
  Receipt Date: 20091008
  Transmission Date: 20100525
  Serious: Yes (Death, Other)
  Sender: FDA-Public Use
  Company Number: US-CELGENEUS-163-21880-09081511

PATIENT
  Sex: Female

DRUGS (6)
  1. REVLIMID [Suspect]
     Indication: MULTIPLE MYELOMA
     Route: 048
     Dates: start: 20090501, end: 20090805
  2. REVLIMID [Suspect]
     Route: 048
     Dates: start: 20070831
  3. REVLIMID [Suspect]
     Route: 048
     Dates: start: 20070401, end: 20070801
  4. THALOMID [Suspect]
     Indication: MULTIPLE MYELOMA
     Route: 048
     Dates: start: 20090819
  5. THALOMID [Suspect]
     Route: 048
     Dates: start: 20060501, end: 20061101
  6. THALOMID [Suspect]
     Route: 048
     Dates: start: 20061201, end: 20070401

REACTIONS (2)
  - DRUG INEFFECTIVE [None]
  - MULTIPLE MYELOMA [None]
